FAERS Safety Report 17414900 (Version 1)
Quarter: 2020Q1

REPORT INFORMATION
  Report Type: Spontaneous
  Country: AU (occurrence: AU)
  Receive Date: 20200213
  Receipt Date: 20200213
  Transmission Date: 20200409
  Serious: Yes (Hospitalization)
  Sender: FDA-Public Use
  Company Number: AU-PFIZER INC-2012001176

PATIENT
  Age: 1 Day
  Sex: Male
  Weight: 2.4 kg

DRUGS (19)
  1. MORPHINE HCL [Suspect]
     Active Substance: MORPHINE HYDROCHLORIDE
     Dosage: DAY1 20 UG/KG/H, UNK
     Route: 042
  2. MORPHINE HCL [Suspect]
     Active Substance: MORPHINE HYDROCHLORIDE
     Dosage: DAY41 100 UG/KG/H, UNK
     Route: 042
  3. MORPHINE HCL [Suspect]
     Active Substance: MORPHINE HYDROCHLORIDE
     Dosage: 50 UG/KG, UNK
  4. MORPHINE HCL [Suspect]
     Active Substance: MORPHINE HYDROCHLORIDE
     Dosage: DAY42 200 UG/KG/HR, UNK
     Route: 042
  5. FENTANYL CITRATE. [Suspect]
     Active Substance: FENTANYL CITRATE
     Dosage: DAY17 2 UG/KG/H, UNK
     Route: 042
  6. FENTANYL CITRATE. [Suspect]
     Active Substance: FENTANYL CITRATE
     Dosage: DAY28 5 UG/KG/H, UNK
     Route: 042
  7. FENTANYL CITRATE. [Suspect]
     Active Substance: FENTANYL CITRATE
     Dosage: DAY 34 5 MCG/KG/H
  8. MORPHINE HCL [Suspect]
     Active Substance: MORPHINE HYDROCHLORIDE
     Dosage: DAY2 40 UG/KG/H, UNK
     Route: 042
  9. MORPHINE HCL [Suspect]
     Active Substance: MORPHINE HYDROCHLORIDE
     Dosage: UNK
     Route: 040
  10. FENTANYL CITRATE. [Suspect]
     Active Substance: FENTANYL CITRATE
     Dosage: DAY35 6 UG/KG/H, UNK
     Route: 042
  11. MIDAZOLAM HYDROCHLORIDE. [Concomitant]
     Active Substance: MIDAZOLAM HYDROCHLORIDE
     Dosage: 3 UG/KG- 1 MIN
  12. MORPHINE HCL [Suspect]
     Active Substance: MORPHINE HYDROCHLORIDE
     Dosage: DAY 5-17 40MCG/KG/H
  13. CLONIDINE. [Concomitant]
     Active Substance: CLONIDINE
     Dosage: 0.33 UG/KG-1H
  14. MORPHINE HCL [Suspect]
     Active Substance: MORPHINE HYDROCHLORIDE
     Dosage: DAY41 150 UG/KG/H, UNK
     Route: 042
  15. MIDAZOLAM HYDROCHLORIDE. [Concomitant]
     Active Substance: MIDAZOLAM HYDROCHLORIDE
     Dosage: 0.5 UG/KG-1 MIN
     Route: 042
  16. CLONIDINE. [Concomitant]
     Active Substance: CLONIDINE
     Dosage: 0.458 UG/KG-1H
  17. FENTANYL CITRATE. [Suspect]
     Active Substance: FENTANYL CITRATE
     Dosage: DAY 1 5 UG/KG/H, UNK
     Route: 042
  18. FENTANYL CITRATE. [Suspect]
     Active Substance: FENTANYL CITRATE
     Dosage: UNK
     Route: 040
  19. TPN [NICOTINAMIDE;PYRIDOXINE HYDROCHLORIDE;TYROSINE] [Concomitant]
     Active Substance: NIACINAMIDE\PYRIDOXINE HYDROCHLORIDE\TYROSINE
     Indication: PARENTERAL NUTRITION

REACTIONS (1)
  - Hyperaesthesia [Unknown]
